FAERS Safety Report 19066042 (Version 4)
Quarter: 2021Q2

REPORT INFORMATION
  Report Type: Report from Study
  Country: US (occurrence: US)
  Receive Date: 20210327
  Receipt Date: 20210609
  Transmission Date: 20210717
  Serious: Yes (Hospitalization)
  Sender: FDA-Public Use
  Company Number: NVSC2021US062826

PATIENT
  Age: 47 Year
  Sex: Female

DRUGS (2)
  1. JARDIANCE [Suspect]
     Active Substance: EMPAGLIFLOZIN
     Indication: PRODUCT USED FOR UNKNOWN INDICATION
     Dosage: UNK
     Route: 065
  2. ENTRESTO [Suspect]
     Active Substance: SACUBITRIL\VALSARTAN
     Indication: CARDIAC FAILURE CONGESTIVE
     Dosage: 50 MG, BID (24/26MG)
     Route: 048
     Dates: start: 20210312

REACTIONS (12)
  - Dyspnoea [Unknown]
  - Fall [Unknown]
  - Pain [Unknown]
  - Dysstasia [Not Recovered/Not Resolved]
  - Alopecia [Unknown]
  - Muscle spasms [Unknown]
  - Vulvovaginal mycotic infection [Unknown]
  - Mobility decreased [Unknown]
  - Movement disorder [Unknown]
  - Back pain [Unknown]
  - Pain in extremity [Not Recovered/Not Resolved]
  - Gait disturbance [Not Recovered/Not Resolved]

NARRATIVE: CASE EVENT DATE: 20210315
